FAERS Safety Report 6635463-4 (Version None)
Quarter: 2010Q1

REPORT INFORMATION
  Report Type: 
  Country: None (occurrence: None)
  Receive Date: 20100315
  Receipt Date: 20090723
  Transmission Date: 20100710
  Serious: No
  Sender: FDA-Public Use
  Company Number: US-ABBOTT-02P-163-0196035-00

PATIENT
  Sex: Female
  Weight: 64.922 kg

DRUGS (7)
  1. DEPAKOTE [Suspect]
     Indication: EPILEPSY
     Route: 048
     Dates: start: 19930101, end: 20060319
  2. DEPAKOTE [Suspect]
     Route: 048
  3. TEGRETOL [Concomitant]
     Indication: CONVULSION
     Route: 048
     Dates: start: 20020703, end: 20040501
  4. TOPAMAX [Concomitant]
     Indication: CONVULSION
     Route: 048
     Dates: start: 20030101
  5. FOLIC ACID [Concomitant]
     Indication: VITAMIN SUPPLEMENTATION
     Route: 048
     Dates: start: 20000101
  6. TRAZODONE HCL [Concomitant]
     Indication: INSOMNIA
     Route: 048
     Dates: start: 20030101
  7. NATAL CARE [Concomitant]
     Indication: VITAMIN SUPPLEMENTATION
     Route: 048
     Dates: start: 20000101

REACTIONS (4)
  - RASH [None]
  - RASH ERYTHEMATOUS [None]
  - SCAR [None]
  - SKIN LESION [None]
